FAERS Safety Report 6748766-X (Version None)
Quarter: 2010Q2

REPORT INFORMATION
  Report Type: 
  Country: None (occurrence: None)
  Receive Date: 20100601
  Receipt Date: 20100519
  Transmission Date: 20101027
  Serious: Yes (Other)
  Sender: FDA-Public Use
  Company Number: PHHY2010JP27103

PATIENT
  Age: 42 Year
  Sex: Male

DRUGS (2)
  1. LAMISIL [Suspect]
     Dosage: 125 MG DAILY
     Route: 048
     Dates: start: 20100301, end: 20100423
  2. BUTENAFINE HYDROCHLORIDE [Concomitant]
     Indication: ONYCHOMYCOSIS
     Dosage: UNK
     Route: 061
     Dates: start: 20100315

REACTIONS (5)
  - FEELING ABNORMAL [None]
  - HAEMORRHAGE [None]
  - MALAISE [None]
  - NAIL PIGMENTATION [None]
  - PLATELET COUNT DECREASED [None]
